FAERS Safety Report 8132371-7 (Version None)
Quarter: 2012Q1

REPORT INFORMATION
  Report Type: 
  Country: None (occurrence: None)
  Receive Date: 20120213
  Receipt Date: 20120201
  Transmission Date: 20120608
  Serious: Yes (Hospitalization)
  Sender: FDA-Public Use
  Company Number: US-ELI_LILLY_AND_COMPANY-US201106006470

PATIENT
  Sex: Female

DRUGS (4)
  1. CREON [Concomitant]
  2. FORTEO [Suspect]
     Indication: OSTEOPOROSIS
     Dosage: 20 UG, QD
     Dates: start: 20100401
  3. FORTEO [Suspect]
     Dosage: 20 UG, QD
  4. FORTEO [Suspect]
     Dosage: 20 UG, QD
     Dates: end: 20120101

REACTIONS (6)
  - CHEST PAIN [None]
  - EXOSTOSIS [None]
  - BURNING SENSATION [None]
  - JOINT SWELLING [None]
  - PAIN IN EXTREMITY [None]
  - HEADACHE [None]
